FAERS Safety Report 18021277 (Version 4)
Quarter: 2020Q3

REPORT INFORMATION
  Report Type: Spontaneous
  Country: DE (occurrence: DE)
  Receive Date: 20200714
  Receipt Date: 20200909
  Transmission Date: 20201103
  Serious: Yes (Hospitalization, Other)
  Sender: FDA-Public Use
  Company Number: DE-BRISTOL-MYERS SQUIBB COMPANY-BMS-2020-054193

PATIENT
  Age: 51 Year
  Sex: Female
  Weight: 45.7 kg

DRUGS (2)
  1. YERVOY [Suspect]
     Active Substance: IPILIMUMAB
     Indication: MALIGNANT MELANOMA
     Dosage: 137 MILLIGRAM
     Route: 042
     Dates: start: 20200430
  2. OPDIVO [Suspect]
     Active Substance: NIVOLUMAB
     Indication: MALIGNANT MELANOMA
     Dosage: 46 MILLIGRAM
     Route: 042
     Dates: start: 20200430

REACTIONS (4)
  - Myositis [Unknown]
  - Peripheral swelling [Unknown]
  - General physical health deterioration [Unknown]
  - Malignant neoplasm progression [Unknown]

NARRATIVE: CASE EVENT DATE: 20200630
